FAERS Safety Report 9207823 (Version 5)
Quarter: 2014Q3

REPORT INFORMATION
  Report Type: Spontaneous
  Country: US (occurrence: US)
  Receive Date: 20130403
  Receipt Date: 20140917
  Transmission Date: 20150326
  Serious: Yes (Hospitalization, Other)
  Sender: FDA-Public Use
  Company Number: US-009507513-1303USA014406

PATIENT
  Sex: Female
  Weight: 81.63 kg

DRUGS (2)
  1. NUVARING [Suspect]
     Active Substance: ETHINYL ESTRADIOL\ETONOGESTREL
     Indication: CONTRACEPTION
     Dosage: UNK
     Route: 067
     Dates: start: 20070711, end: 20110221
  2. NUVARING [Suspect]
     Active Substance: ETHINYL ESTRADIOL\ETONOGESTREL
     Dosage: UNK
     Route: 067
     Dates: start: 2010, end: 20110221

REACTIONS (8)
  - Neck pain [Unknown]
  - Musculoskeletal pain [Unknown]
  - Back pain [Unknown]
  - Pulmonary embolism [Recovering/Resolving]
  - Unintended pregnancy [Recovered/Resolved]
  - Cholecystectomy [Unknown]
  - Dyspnoea [Unknown]
  - Thrombosis [Unknown]

NARRATIVE: CASE EVENT DATE: 20090917
